FAERS Safety Report 8262453-0 (Version None)
Quarter: 2012Q2

REPORT INFORMATION
  Report Type: 
  Country: None (occurrence: None)
  Receive Date: 20120405
  Receipt Date: 20120329
  Transmission Date: 20120825
  Serious: Yes (Hospitalization)
  Sender: FDA-Public Use
  Company Number: NL-MEDIMMUNE-MEDI-0014335

PATIENT
  Sex: Male
  Weight: 4 kg

DRUGS (2)
  1. SYNAGIS [Suspect]
     Route: 030
     Dates: start: 20111024, end: 20111024
  2. SYNAGIS [Suspect]
     Route: 030
     Dates: start: 20111228, end: 20120328

REACTIONS (1)
  - INFECTION [None]
